FAERS Safety Report 10880480 (Version 1)
Quarter: 2015Q1

REPORT INFORMATION
  Report Type: Spontaneous
  Country: US (occurrence: US)
  Receive Date: 20150303
  Receipt Date: 20150303
  Transmission Date: 20150721
  Serious: Yes (Other)
  Sender: FDA-Public Use
  Company Number: US-ASTRAZENECA-2015SE18570

PATIENT
  Age: 3387 Week
  Sex: Male
  Weight: 92.5 kg

DRUGS (6)
  1. METOPROLOL SUCCINATE. [Suspect]
     Active Substance: METOPROLOL SUCCINATE
     Indication: HEART RATE IRREGULAR
     Route: 048
     Dates: start: 2012
  2. PANTOPRAZOLE [Concomitant]
     Active Substance: PANTOPRAZOLE SODIUM
     Indication: GASTROOESOPHAGEAL REFLUX DISEASE
     Route: 048
     Dates: start: 2012
  3. ALLOPURINOL. [Concomitant]
     Active Substance: ALLOPURINOL
     Indication: BLOOD URIC ACID INCREASED
     Route: 048
     Dates: start: 201301
  4. ASPIRIN. [Concomitant]
     Active Substance: ASPIRIN
     Indication: ILL-DEFINED DISORDER
     Route: 048
  5. DIOVAN [Concomitant]
     Active Substance: VALSARTAN
     Indication: CARDIAC DISORDER
     Route: 048
     Dates: start: 201406
  6. BRILINTA [Suspect]
     Active Substance: TICAGRELOR
     Indication: STENT PLACEMENT
     Route: 048
     Dates: start: 201412

REACTIONS (12)
  - Fatigue [Unknown]
  - Dyspnoea exertional [Unknown]
  - Blood pressure decreased [Unknown]
  - Scratch [Unknown]
  - Vision blurred [Unknown]
  - Back pain [Unknown]
  - Epistaxis [Unknown]
  - Feeling abnormal [Unknown]
  - Dyspnoea [Unknown]
  - Non-cardiac chest pain [Unknown]
  - Ulcer haemorrhage [Unknown]
  - Myalgia [Unknown]

NARRATIVE: CASE EVENT DATE: 201412
